FAERS Safety Report 8597677-6 (Version None)
Quarter: 2012Q3

REPORT INFORMATION
  Report Type: 
  Country: None (occurrence: None)
  Receive Date: 20120816
  Receipt Date: 20120810
  Transmission Date: 20120928
  Serious: Yes (Hospitalization)
  Sender: FDA-Public Use
  Company Number: FR-PFIZER INC-2012195251

PATIENT
  Age: 48 Year
  Sex: Male

DRUGS (1)
  1. RAPAMUNE [Suspect]
     Indication: RENAL TRANSPLANT
     Dosage: 3 MG, 3X/DAY
     Route: 048
     Dates: start: 20110301, end: 20110801

REACTIONS (2)
  - CYTOLYTIC HEPATITIS [None]
  - HYPERTRIGLYCERIDAEMIA [None]
